FAERS Safety Report 9777385 (Version 1)
Quarter: 2013Q4

REPORT INFORMATION
  Report Type: Report from Study
  Country: MX (occurrence: MX)
  Receive Date: 20131221
  Receipt Date: 20131221
  Transmission Date: 20140711
  Serious: Yes (Other)
  Sender: FDA-Public Use
  Company Number: PHHY2013MX148305

PATIENT
  Age: 59 Year
  Sex: Female

DRUGS (5)
  1. DIOVAN [Suspect]
     Indication: BLOOD PRESSURE ABNORMAL
     Dosage: 160 MG, UNK
     Route: 048
  2. DIOVAN [Suspect]
     Indication: BLOOD GLUCOSE ABNORMAL
  3. DIOVAN [Suspect]
     Indication: OFF LABEL USE
  4. EXFORGE HCT [Suspect]
     Indication: BLOOD PRESSURE ABNORMAL
     Dosage: 0.5 DF, (0.5 DF IN THE MORNING, 0.5 DF IN THE EVENING, 0.5 DF WHILE TRAVELLING)
  5. LOSARTAN [Suspect]

REACTIONS (7)
  - Glucose tolerance impaired [Not Recovered/Not Resolved]
  - Feeling drunk [Recovered/Resolved]
  - Blood cholesterol abnormal [Not Recovered/Not Resolved]
  - Headache [Not Recovered/Not Resolved]
  - Constipation [Not Recovered/Not Resolved]
  - Blood pressure increased [Recovered/Resolved]
  - Wrong technique in drug usage process [Not Recovered/Not Resolved]
